FAERS Safety Report 13124328 (Version 2)
Quarter: 2017Q1

REPORT INFORMATION
  Report Type: Spontaneous
  Country: FR (occurrence: FR)
  Receive Date: 20170118
  Receipt Date: 20170329
  Transmission Date: 20170428
  Serious: Yes (Hospitalization)
  Sender: FDA-Public Use
  Company Number: FR-ROCHE-1880860

PATIENT
  Age: 73 Year
  Sex: Male
  Weight: 62 kg

DRUGS (6)
  1. DIFFU K [Concomitant]
     Active Substance: POTASSIUM CHLORIDE
     Route: 048
     Dates: start: 20150811
  2. SOLUPRED (FRANCE) [Suspect]
     Active Substance: PREDNISOLONE
     Indication: DIFFUSE VASCULITIS
     Route: 048
     Dates: start: 20150323
  3. LASILIX [Concomitant]
     Active Substance: FUROSEMIDE
     Route: 065
  4. CELLCEPT [Suspect]
     Active Substance: MYCOPHENOLATE MOFETIL\MYCOPHENOLATE MOFETIL HYDROCHLORIDE
     Indication: DIFFUSE VASCULITIS
     Route: 048
     Dates: start: 201511
  5. BISOPROLOL [Concomitant]
     Active Substance: BISOPROLOL
     Route: 048
     Dates: start: 20150811
  6. INEXIUM [Concomitant]
     Active Substance: ESOMEPRAZOLE
     Route: 065

REACTIONS (5)
  - General physical health deterioration [Recovered/Resolved]
  - Diarrhoea haemorrhagic [Recovered/Resolved]
  - Anaemia [Recovered/Resolved]
  - Off label use [Unknown]
  - Dysgeusia [Recovered/Resolved]

NARRATIVE: CASE EVENT DATE: 20160101
